FAERS Safety Report 15380048 (Version 1)
Quarter: 2018Q3

REPORT INFORMATION
  Report Type: Spontaneous
  Country: US (occurrence: US)
  Receive Date: 20180913
  Receipt Date: 20180913
  Transmission Date: 20181010
  Serious: No
  Sender: FDA-Public Use
  Company Number: US-BAYER-2018-170623

PATIENT

DRUGS (2)
  1. BETASERON [Suspect]
     Active Substance: INTERFERON BETA-1B
     Dosage: UNK
  2. BETACONNECT [Suspect]
     Active Substance: DEVICE
     Dosage: UNK
     Dates: end: 2018

REACTIONS (1)
  - Injection site pain [None]
